FAERS Safety Report 9297662 (Version 3)
Quarter: 2014Q2

REPORT INFORMATION
  Report Type: Spontaneous
  Country: US (occurrence: US)
  Receive Date: 20130520
  Receipt Date: 20140421
  Transmission Date: 20141212
  Serious: Yes (Other)
  Sender: FDA-Public Use
  Company Number: US-BAYER-2013-062081

PATIENT
  Age: 30 Year
  Sex: Female

DRUGS (7)
  1. YASMIN [Suspect]
     Indication: CONTRACEPTION
     Dosage: UNK
     Dates: start: 2001, end: 200204
  2. YAZ [Suspect]
     Indication: CONTRACEPTION
     Dosage: UNK
     Dates: start: 2001, end: 200204
  3. OCELLA [Suspect]
     Indication: CONTRACEPTION
     Dosage: UNK
     Dates: start: 2001, end: 200204
  4. PREVACID [Concomitant]
     Indication: GASTROINTESTINAL ULCER HAEMORRHAGE
     Route: 048
  5. DEMEROL [Concomitant]
     Indication: PAIN
     Dosage: 50 MG, UNK
     Route: 042
     Dates: start: 20020315
  6. PHENERGAN [Concomitant]
     Indication: PAIN
     Dosage: 37.5 MG, UNK
     Route: 042
  7. ROCEPHIN [Concomitant]
     Dosage: 2 G, UNK
     Dates: start: 20020315

REACTIONS (10)
  - Deep vein thrombosis [Recovered/Resolved]
  - Thrombosis [None]
  - Injury [Recovered/Resolved]
  - Pain [None]
  - General physical health deterioration [Recovered/Resolved]
  - Anxiety [None]
  - Emotional distress [None]
  - Pain [Recovered/Resolved]
  - Pulmonary embolism [None]
  - Cerebrovascular accident [None]
